FAERS Safety Report 11966581 (Version 2)
Quarter: 2016Q1

REPORT INFORMATION
  Report Type: Spontaneous
  Country: GB (occurrence: GB)
  Receive Date: 20160127
  Receipt Date: 20160329
  Transmission Date: 20160526
  Serious: Yes (Other)
  Sender: FDA-Public Use
  Company Number: GB-ASTELLAS-2016US002798

PATIENT
  Sex: Male

DRUGS (5)
  1. SIROLIMUS. [Concomitant]
     Active Substance: SIROLIMUS
     Indication: INTESTINAL TRANSPLANT
     Dosage: UNK UNK, UNKNOWN FREQ.
     Route: 065
  2. SIROLIMUS. [Concomitant]
     Active Substance: SIROLIMUS
     Dosage: UNK, UNKNOWN FREQ.
     Route: 065
  3. BASILIXIMAB [Concomitant]
     Active Substance: BASILIXIMAB
     Indication: INTESTINAL TRANSPLANT
     Dosage: UNK UNK, UNKNOWN FREQ.
     Route: 065
  4. TACROLIMUS SYSTEMIC [Suspect]
     Active Substance: TACROLIMUS
     Indication: INTESTINAL TRANSPLANT
     Dosage: UNK UNK, UNKNOWN FREQ.
     Route: 065
  5. PREDNISOLONE. [Concomitant]
     Active Substance: PREDNISOLONE
     Indication: INTESTINAL TRANSPLANT
     Dosage: UNK UNK, UNKNOWN FREQ.
     Route: 065

REACTIONS (6)
  - Large intestine polyp [Recovered/Resolved]
  - Post transplant lymphoproliferative disorder [Unknown]
  - Off label use [Unknown]
  - Smooth muscle cell neoplasm [Unknown]
  - Malabsorption [Unknown]
  - Ileal ulcer [Not Recovered/Not Resolved]
